FAERS Safety Report 5289329-5 (Version None)
Quarter: 2007Q2

REPORT INFORMATION
  Report Type: 
  Country: None (occurrence: None)
  Receive Date: 20070403
  Receipt Date: 20070403
  Transmission Date: 20071010
  Serious: Yes (Hospitalization)
  Sender: FDA-Public Use
  Company Number: None

PATIENT
  Age: 75 Year
  Sex: Male
  Weight: 97.0698 kg

DRUGS (12)
  1. ATACAND [Suspect]
     Indication: ACUTE MYOCARDIAL INFARCTION
     Dosage: 4-32MG QD IND#71,954 PATIENT RANDOMIZED TO ALTACE
  2. ATACAND [Suspect]
     Indication: DIABETES MELLITUS
     Dosage: 4-32MG QD IND#71,954 PATIENT RANDOMIZED TO ALTACE
  3. ALLOPURINOL [Suspect]
     Indication: ACUTE MYOCARDIAL INFARCTION
     Dosage: 300MG QD IND#71,953
  4. ALLOPURINOL [Suspect]
     Indication: DIABETES MELLITUS
     Dosage: 300MG QD IND#71,953
  5. ISOSORBIDE [Concomitant]
  6. FUROSEMIDE [Concomitant]
  7. ASPIRIN [Concomitant]
  8. LIPITOR [Concomitant]
  9. PLAVIX [Concomitant]
  10. ALLOPRURINOL [Concomitant]
  11. POTASSIUM ACETATE [Concomitant]
  12. METORPROLOL [Concomitant]

REACTIONS (1)
  - NO ADVERSE EFFECT [None]
